FAERS Safety Report 5964904 (Version 4)
Quarter: 2020Q3

REPORT INFORMATION
  Report Type: Report from Study
  Country: PL (occurrence: PL)
  Receive Date: 20060120
  Receipt Date: 20060824
  Transmission Date: 20201105
  Serious: Yes (Hospitalization)
  Sender: FDA-Public Use
  Company Number: PL-ROCHE-419224

PATIENT
  Age: 71 Year
  Sex: Female
  Weight: 50 kg

DRUGS (10)
  1. CALCIUM GLUCONATE. [Concomitant]
     Active Substance: CALCIUM GLUCONATE
  2. SALICYLIC ACID. [Concomitant]
     Active Substance: SALICYLIC ACID
     Route: 061
  3. SIMVASTATIN. [Concomitant]
     Active Substance: SIMVASTATIN
     Dates: start: 20040817, end: 20050818
  4. CALCIUM CARBONATE. [Concomitant]
     Active Substance: CALCIUM CARBONATE
     Dates: start: 20051021, end: 20051028
  5. VITAMIN E [Concomitant]
     Active Substance: .ALPHA.-TOCOPHEROL
     Dates: start: 20041001, end: 20050818
  6. IBANDRONIC ACID. [Suspect]
     Active Substance: IBANDRONIC ACID
     Indication: OSTEOPOROSIS POSTMENOPAUSAL
     Dosage: LAST DOSE PRIOR TO SAE: 21 OCTOBER 2005
     Route: 042
     Dates: start: 20051021, end: 20051021
  7. IBANDRONIC ACID. [Suspect]
     Active Substance: IBANDRONIC ACID
     Dosage: DOSE, ROUTE AND FRQUENCY BLINDED. PATIENT ENROLLED IN BM16550.
     Route: 065
  8. VITAMIN A [Concomitant]
     Active Substance: VITAMIN A
     Dates: start: 20041001, end: 20050818
  9. IBANDRONIC ACID. [Suspect]
     Active Substance: IBANDRONIC ACID
     Dosage: DATE OF LAST DOSE PRIOR TO SAE: 21 JUNE 2005
     Route: 042
     Dates: start: 20020223, end: 20050622
  10. VITAMINE D [Concomitant]

REACTIONS (1)
  - Colitis ulcerative [Recovered/Resolved with Sequelae]

NARRATIVE: CASE EVENT DATE: 20050812
